FAERS Safety Report 6291190-7 (Version None)
Quarter: 2009Q3

REPORT INFORMATION
  Report Type: 
  Country: None (occurrence: None)
  Receive Date: 20090729
  Receipt Date: 20090729
  Transmission Date: 20100115
  Serious: Yes (Other)
  Sender: FDA-Public Use
  Company Number: None

PATIENT
  Age: 6 Year
  Sex: Male
  Weight: 20 kg

DRUGS (1)
  1. OLEPTAL OD 150MG TORRENT [Suspect]
     Indication: EPILEPSY
     Dosage: 150MG TWICE DAILY PO
     Route: 048
     Dates: start: 20070320, end: 20090725

REACTIONS (1)
  - MYOCLONIC EPILEPSY [None]
